FAERS Safety Report 25199594 (Version 2)
Quarter: 2025Q2

REPORT INFORMATION
  Report Type: Spontaneous
  Country: DE (occurrence: DE)
  Receive Date: 20250415
  Receipt Date: 20250415
  Transmission Date: 20250716
  Serious: Yes (Hospitalization, Other)
  Sender: ASCEND THERAPEUTICS US, LLC
  Company Number: DE-Ascend Therapeutics US, LLC-2172872

PATIENT
  Age: 26 Year
  Sex: Female

DRUGS (14)
  1. ESTROGEL [Suspect]
     Active Substance: ESTRADIOL
     Indication: Assisted reproductive technology
     Dates: start: 20250122, end: 20250123
  2. ESTRADIOL [Suspect]
     Active Substance: ESTRADIOL
     Dates: start: 20250122, end: 20250123
  3. ASPIRIN [Suspect]
     Active Substance: ASPIRIN
     Dates: start: 20250124, end: 20250209
  4. GONADOTROPHIN, CHORIONIC [Suspect]
     Active Substance: GONADOTROPHIN, CHORIONIC
     Dates: start: 20250127, end: 20250127
  5. GONADOTROPHIN, CHORIONIC [Suspect]
     Active Substance: GONADOTROPHIN, CHORIONIC
     Dates: start: 20250122, end: 20250122
  6. ESTRADIOL\ESTRIOL [Suspect]
     Active Substance: ESTRADIOL\ESTRIOL
     Dates: start: 20250124, end: 20250209
  7. DUPHASTON [Suspect]
     Active Substance: DYDROGESTERONE
     Dates: start: 20250122, end: 20250209
  8. PROGESTERONE [Suspect]
     Active Substance: PROGESTERONE
     Dates: start: 20250124, end: 20250209
  9. PROGESTERONE [Suspect]
     Active Substance: PROGESTERONE
     Dates: start: 20250122, end: 20250123
  10. TRIPTORELIN ACETATE [Suspect]
     Active Substance: TRIPTORELIN ACETATE
     Dates: start: 20250120, end: 20250120
  11. GONAL-F [Suspect]
     Active Substance: FOLLITROPIN
     Dates: start: 20250120, end: 20250120
  12. GONAL-F [Suspect]
     Active Substance: FOLLITROPIN
     Dates: start: 20250114, end: 20250119
  13. GONAL-F [Suspect]
     Active Substance: FOLLITROPIN
     Dates: start: 20250109, end: 20250113
  14. GANIRELIX ACETATE [Suspect]
     Active Substance: GANIRELIX ACETATE
     Dates: start: 20250114, end: 20250119

REACTIONS (9)
  - Ovarian hyperstimulation syndrome [Recovered/Resolved]
  - Underdose [Recovered/Resolved]
  - Product use issue [Recovered/Resolved]
  - Thrombophlebitis [Recovered/Resolved]
  - Nausea [Recovered/Resolved]
  - Vomiting [Recovered/Resolved]
  - Dyspnoea [Recovered/Resolved]
  - Abdominal tenderness [Recovered/Resolved]
  - Abdominal wall disorder [Recovered/Resolved]

NARRATIVE: CASE EVENT DATE: 20250122
